FAERS Safety Report 7632760 (Version 2)
Quarter: 2013Q4

REPORT INFORMATION
  Report Type: Spontaneous
  Country: US (occurrence: US)
  Receive Date: 20101018
  Receipt Date: 20131212
  Transmission Date: 20140711
  Serious: Yes (Other)
  Sender: FDA-Public Use
  Company Number: US-US-EMD SERONO, INC.-232144J09USA

PATIENT
  Age: 34 Year
  Sex: Female

DRUGS (6)
  1. REBIF [Suspect]
     Indication: MULTIPLE SCLEROSIS
     Route: 058
     Dates: start: 20060920
  2. REBIF [Suspect]
     Route: 058
  3. REBIF [Suspect]
     Route: 058
     Dates: start: 20110920, end: 201310
  4. RAMIPRIL [Concomitant]
     Indication: HYPERTENSION
     Route: 065
  5. FUROSEMIDE [Concomitant]
     Indication: CARDIOMYOPATHY
     Route: 065
  6. CARVEDILOL [Concomitant]
     Indication: CARDIOMYOPATHY
     Route: 065

REACTIONS (2)
  - Epilepsy [Recovered/Resolved]
  - Convulsion [Unknown]
